FAERS Safety Report 7751854-2 (Version None)
Quarter: 2011Q3

REPORT INFORMATION
  Report Type: 
  Country: None (occurrence: None)
  Receive Date: 20110914
  Receipt Date: 20110914
  Transmission Date: 20111222
  Serious: Yes (Hospitalization)
  Sender: FDA-Public Use
  Company Number: None

PATIENT
  Age: 66 Year
  Sex: Male
  Weight: 71.7 kg

DRUGS (2)
  1. CLOPIDOGREL [Suspect]
     Indication: SURGERY
     Dosage: 75 MG EVERY DAY PO
     Route: 048
     Dates: start: 20110801, end: 20110907
  2. ASPIRIN [Suspect]
     Indication: SURGERY
     Dosage: 325 MG EVERY DAY PO
     Route: 048
     Dates: start: 20110801, end: 20110907

REACTIONS (5)
  - ABDOMINAL PAIN [None]
  - RETCHING [None]
  - GASTRIC HAEMORRHAGE [None]
  - HAEMATEMESIS [None]
  - VOMITING [None]
